FAERS Safety Report 19217241 (Version 1)
Quarter: 2021Q2

REPORT INFORMATION
  Report Type: Spontaneous
  Country: US (occurrence: US)
  Receive Date: 20210505
  Receipt Date: 20210505
  Transmission Date: 20210717
  Serious: No
  Sender: FDA-Public Use
  Company Number: None

PATIENT
  Age: 71 Year
  Sex: Female
  Weight: 64.8 kg

DRUGS (1)
  1. GAMUNEX?C [Suspect]
     Active Substance: HUMAN IMMUNOGLOBULIN G
     Indication: MYASTHENIA GRAVIS
     Dosage: ?          OTHER FREQUENCY:3 DAYS Q4 WEEKS;?
     Route: 041
     Dates: start: 20190507

REACTIONS (5)
  - Cough [None]
  - Paravenous drug administration [None]
  - Recalled product administered [None]
  - Nasal congestion [None]
  - Hypopnoea [None]

NARRATIVE: CASE EVENT DATE: 20210428
